FAERS Safety Report 4732595-2 (Version None)
Quarter: 2005Q3

REPORT INFORMATION
  Report Type: 
  Country: None (occurrence: None)
  Receive Date: 20050803
  Receipt Date: 20050722
  Transmission Date: 20060218
  Serious: Yes (Hospitalization)
  Sender: FDA-Public Use
  Company Number: US-JNJFOC-20050704956

PATIENT
  Sex: Female
  Weight: 54.43 kg

DRUGS (19)
  1. INFLIXIMAB [Suspect]
     Indication: RHEUMATOID ARTHRITIS
     Route: 042
     Dates: start: 20010531, end: 20030215
  2. CALCIUM GLUCONATE [Concomitant]
  3. LACTULOSE [Concomitant]
  4. MORPHINE [Concomitant]
  5. MULTI-VITAMIN [Concomitant]
  6. MULTI-VITAMIN [Concomitant]
  7. MULTI-VITAMIN [Concomitant]
  8. MULTI-VITAMIN [Concomitant]
  9. MULTI-VITAMIN [Concomitant]
  10. MULTI-VITAMIN [Concomitant]
  11. MULTI-VITAMIN [Concomitant]
  12. MULTI-VITAMIN [Concomitant]
  13. OXYCODONE [Concomitant]
  14. MOBIC [Concomitant]
  15. NEXIUM [Concomitant]
  16. ZOMIG [Concomitant]
  17. HUMIRA [Concomitant]
  18. ZONEGRAN [Concomitant]
  19. SENNA [Concomitant]

REACTIONS (1)
  - DYSTONIA [None]
